FAERS Safety Report 4947273-4 (Version None)
Quarter: 2006Q1

REPORT INFORMATION
  Report Type: 
  Country: None (occurrence: None)
  Receive Date: 20060317
  Receipt Date: 20060130
  Transmission Date: 20060701
  Serious: Yes (Life-Threatening, Hospitalization)
  Sender: FDA-Public Use
  Company Number: CA-AMGEN-US166890

PATIENT
  Sex: Female

DRUGS (5)
  1. ENBREL [Suspect]
     Indication: RHEUMATOID ARTHRITIS
     Route: 058
     Dates: start: 20040801, end: 20060201
  2. METHOTREXATE [Concomitant]
     Route: 058
  3. TRAZODONE [Concomitant]
  4. FOLIC ACID [Concomitant]
  5. MOBIC [Concomitant]
     Route: 065
     Dates: start: 20060128

REACTIONS (10)
  - ARTHRALGIA [None]
  - CARDIAC MURMUR [None]
  - JOINT ABSCESS [None]
  - MALAISE [None]
  - MUSCLE TIGHTNESS [None]
  - MYALGIA [None]
  - PHARYNGOLARYNGEAL PAIN [None]
  - PYREXIA [None]
  - RETROPHARYNGEAL ABSCESS [None]
  - STAPHYLOCOCCAL SEPSIS [None]
